FAERS Safety Report 18707007 (Version 1)
Quarter: 2021Q1

REPORT INFORMATION
  Report Type: Spontaneous
  Country: US (occurrence: US)
  Receive Date: 20210106
  Receipt Date: 20210106
  Transmission Date: 20210419
  Serious: Yes (Other)
  Sender: FDA-Public Use
  Company Number: None

PATIENT
  Age: 41 Year
  Sex: Female
  Weight: 58.1 kg

DRUGS (7)
  1. MULTIPLE VITAMINS WITH IRON [Concomitant]
  2. HUMIRA [Suspect]
     Active Substance: ADALIMUMAB
     Indication: COLITIS ULCERATIVE
     Dosage: OTHER FREQUENCY:EVERY 14 DAYS;?
     Route: 058
     Dates: start: 20200302
  3. ALBUTEROL SULFATE HFA 108MCG/ACT INHALER [Concomitant]
  4. PROBIOTIC [Concomitant]
     Active Substance: PROBIOTICS NOS
  5. MESALAMINE 1000MG SUPPOSITORY [Concomitant]
  6. ECHINACEA C COMPLETE [Concomitant]
  7. DOCUSATE 100 MG CAPSULE [Concomitant]
     Active Substance: DOCUSATE SODIUM

REACTIONS (18)
  - Hepatitis B virus test positive [None]
  - Night sweats [None]
  - Bacterial test [None]
  - Feeling abnormal [None]
  - Lupus-like syndrome [None]
  - Condition aggravated [None]
  - Urine analysis abnormal [None]
  - Protein total increased [None]
  - Blood creatinine abnormal [None]
  - Chest discomfort [None]
  - White blood cell count increased [None]
  - Neutrophil count increased [None]
  - Pruritus [None]
  - Fatigue [None]
  - Lymphadenopathy [None]
  - Blood urine [None]
  - Lymphocyte count abnormal [None]
  - Blood glucose abnormal [None]

NARRATIVE: CASE EVENT DATE: 20201222
